FAERS Safety Report 5052933-3 (Version None)
Quarter: 2006Q3

REPORT INFORMATION
  Report Type: 
  Country: None (occurrence: None)
  Receive Date: 20060717
  Receipt Date: 20060712
  Transmission Date: 20061208
  Serious: Yes (Other)
  Sender: FDA-Public Use
  Company Number: US-GLAXOSMITHKLINE-A0612112A

PATIENT
  Sex: Female

DRUGS (1)
  1. AQUAFRESH EXTREME CLEAN WHITENING MINT EXPERIENCE TOOTHPASTE [Suspect]
     Indication: DENTAL CLEANING

REACTIONS (6)
  - ANXIETY [None]
  - ASPIRATION [None]
  - CHOKING [None]
  - DYSPNOEA [None]
  - PHARYNGOLARYNGEAL PAIN [None]
  - SENSATION OF FOREIGN BODY [None]
